FAERS Safety Report 5450152-X (Version None)
Quarter: 2007Q3

REPORT INFORMATION
  Report Type: 
  Country: None (occurrence: None)
  Receive Date: 20070912
  Receipt Date: 20070906
  Transmission Date: 20080115
  Serious: Yes (Hospitalization)
  Sender: FDA-Public Use
  Company Number: B0486433B

PATIENT
  Age: 59 Year
  Sex: Female
  Weight: 69 kg

DRUGS (2)
  1. TYKERB [Suspect]
     Route: 048
     Dates: start: 20070702
  2. NAVELBINE [Suspect]
     Route: 042
     Dates: start: 20070702

REACTIONS (7)
  - ANOREXIA [None]
  - ASTHENIA [None]
  - CLOSTRIDIAL INFECTION [None]
  - COUGH [None]
  - DIARRHOEA INFECTIOUS [None]
  - PYREXIA [None]
  - WEIGHT DECREASED [None]
